FAERS Safety Report 19082029 (Version 3)
Quarter: 2021Q2

REPORT INFORMATION
  Report Type: Spontaneous
  Country: JP (occurrence: JP)
  Receive Date: 20210401
  Receipt Date: 20210415
  Transmission Date: 20210717
  Serious: Yes (Life-Threatening, Other)
  Sender: FDA-Public Use
  Company Number: JP-ASTELLAS-2021JP001414

PATIENT
  Age: 84 Year
  Sex: Male
  Weight: 52 kg

DRUGS (7)
  1. BETANIS [Suspect]
     Active Substance: MIRABEGRON
     Indication: HYPERTONIC BLADDER
     Dosage: 50 MG, ONCE DAILY, AFTER DINNER
     Route: 048
     Dates: end: 20201222
  2. HARNAL [Suspect]
     Active Substance: TAMSULOSIN HYDROCHLORIDE
     Indication: PRODUCT USED FOR UNKNOWN INDICATION
     Dosage: 0.2 MG, ONCE DAILY, AFTER DINNER
     Route: 048
     Dates: end: 20200805
  3. MILLIS [Concomitant]
     Indication: ANGINA PECTORIS
     Route: 065
     Dates: start: 20161213
  4. BAYASPIRIN [Concomitant]
     Active Substance: ASPIRIN
     Indication: ANGINA PECTORIS
     Route: 048
     Dates: start: 20130909
  5. AMLODIPINE [Concomitant]
     Active Substance: AMLODIPINE BESYLATE
     Indication: HYPERTENSION
     Dosage: 2.5 MG, ONCE DAILY, IN THE MORNING
     Route: 048
     Dates: start: 20000926
  6. AMLODIPINE [Concomitant]
     Active Substance: AMLODIPINE BESYLATE
     Dosage: 2.5 MG, TWICE DAILY, IN THE MORNING AND AT BEDTIME
     Route: 048
     Dates: start: 20200812
  7. AMLODIPINE [Concomitant]
     Active Substance: AMLODIPINE BESYLATE
     Dosage: 1.25 MG IN THE MORNING AND 2.5 MG IN THE EVENING, TWICE DAILY
     Route: 048
     Dates: start: 20201222

REACTIONS (4)
  - Blood pressure increased [Recovered/Resolved]
  - Blood pressure decreased [Recovering/Resolving]
  - Blood pressure increased [Recovering/Resolving]
  - Blood pressure decreased [Recovering/Resolving]

NARRATIVE: CASE EVENT DATE: 20200805
